FAERS Safety Report 14181148 (Version 1)
Quarter: 2017Q4

REPORT INFORMATION
  Report Type: Spontaneous
  Country: LT (occurrence: LT)
  Receive Date: 20171112
  Receipt Date: 20171112
  Transmission Date: 20180321
  Serious: Yes (Other)
  Sender: FDA-Public Use
  Company Number: LT-TEVA-824224ROM

PATIENT
  Age: 74 Year
  Sex: Female

DRUGS (3)
  1. THIAMAZOLE [Interacting]
     Active Substance: METHIMAZOLE
     Indication: BASEDOW^S DISEASE
     Dosage: 30 MILLIGRAM DAILY;
     Route: 048
  2. THIAMAZOLE [Interacting]
     Active Substance: METHIMAZOLE
     Dosage: 10 MILLIGRAM DAILY; DECREASED TO 5MG ONCE A DAY FOLLOWED BY 2.5MG DAILY IN RESPONSE TO THE ADR
     Route: 048
  3. METHYLPREDNISOLONE. [Suspect]
     Active Substance: METHYLPREDNISOLONE
     Indication: ENDOCRINE OPHTHALMOPATHY
     Route: 041
     Dates: start: 201502

REACTIONS (3)
  - Hypothyroidism [Recovered/Resolved]
  - Drug-induced liver injury [Recovered/Resolved]
  - Drug interaction [Recovered/Resolved]

NARRATIVE: CASE EVENT DATE: 201503
